FAERS Safety Report 9914561 (Version 1)
Quarter: 2014Q1

REPORT INFORMATION
  Report Type: Other
  Country: US (occurrence: US)
  Receive Date: 20140220
  Receipt Date: 20140220
  Transmission Date: 20141002
  Serious: Yes (Hospitalization)
  Sender: FDA-Public Use
  Company Number: US-PURDUE-DEU-2014-0013639

PATIENT
  Age: 48 Year
  Sex: Female

DRUGS (2)
  1. NON-PMN BUPRENORPHINE [Suspect]
     Indication: PRODUCT USED FOR UNKNOWN INDICATION
     Dosage: 0.3 MG, Q8H
     Route: 030
  2. HYDROCODONE W/ACETAMINOPHEN [Concomitant]
     Indication: DRUG ABUSE

REACTIONS (1)
  - Hepatitis acute [Recovered/Resolved]
